FAERS Safety Report 9199034 (Version 1)
Quarter: 2013Q1

REPORT INFORMATION
  Report Type: Spontaneous
  Country: US (occurrence: None)
  Receive Date: 20130325
  Receipt Date: 20130325
  Transmission Date: 20140127
  Serious: No
  Sender: FDA-Public Use
  Company Number: 2013US-004602

PATIENT
  Age: 75 Year
  Sex: Male
  Weight: 75 kg

DRUGS (15)
  1. OMONTYS (PEGINESATIDE) SOLUTION FOR INJECTION [Suspect]
     Indication: NEPHROGENIC ANAEMIA
     Dates: start: 20130216, end: 20130216
  2. VENOFER [Concomitant]
  3. ZEMPLAR [Concomitant]
  4. HEPARIN SODIUM [Concomitant]
  5. EPOGEN (EPOETIN ALFA) [Concomitant]
  6. JEVTANA (CABAZITAXEL) [Concomitant]
  7. NEULASTA (PEGFILGRASTIM) [Concomitant]
  8. ADALAT (NIFEDIPINE) [Concomitant]
  9. CLONIDINE [Concomitant]
  10. COREG CR (CARVEDILOL) [Concomitant]
  11. DIOVAN (VALSARTAN) [Concomitant]
  12. MINOXIDIL [Concomitant]
  13. SENSIPAR (CINACALCET HYDROCHLORIDE) [Concomitant]
  14. RENVELA (SEVELAMER CARBONATE) [Concomitant]
  15. XANAX (ALPRAZOLAM) [Concomitant]

REACTIONS (9)
  - Hypersensitivity [None]
  - Chest discomfort [None]
  - Hyperhidrosis [None]
  - Vomiting [None]
  - Lip swelling [None]
  - Pruritus [None]
  - Hypertension [None]
  - Heart rate increased [None]
  - Retching [None]
